FAERS Safety Report 7290126-X (Version None)
Quarter: 2011Q1

REPORT INFORMATION
  Report Type: 
  Country: None (occurrence: None)
  Receive Date: 20110214
  Receipt Date: 20110202
  Transmission Date: 20110831
  Serious: Yes (Other)
  Sender: FDA-Public Use
  Company Number: DE-JNJFOC-20101202392

PATIENT
  Sex: Male
  Weight: 83 kg

DRUGS (1)
  1. PALEXIA RETARD [Suspect]
     Indication: PAIN
     Route: 048

REACTIONS (4)
  - DIZZINESS [None]
  - SUICIDAL IDEATION [None]
  - PRURITUS [None]
  - DEPRESSION [None]
